FAERS Safety Report 5486155-9 (Version None)
Quarter: 2007Q4

REPORT INFORMATION
  Report Type: 
  Country: None (occurrence: None)
  Receive Date: 20071015
  Receipt Date: 20071003
  Transmission Date: 20080405
  Serious: Yes (Death, Other)
  Sender: FDA-Public Use
  Company Number: US-PFIZER INC-2007031947

PATIENT
  Sex: Female
  Weight: 61.363 kg

DRUGS (5)
  1. ALDACTONE [Suspect]
     Indication: CARDIAC FAILURE CONGESTIVE
     Dates: start: 20061101, end: 20070301
  2. ALDACTONE [Suspect]
     Indication: HYPERTENSION
  3. METOPROLOL [Suspect]
  4. LASIX [Suspect]
  5. FENTANYL [Concomitant]

REACTIONS (6)
  - BONE NEOPLASM MALIGNANT [None]
  - CARDIAC FAILURE [None]
  - HYPOTENSION [None]
  - OEDEMA PERIPHERAL [None]
  - RENAL FAILURE [None]
  - TACHYCARDIA [None]
